FAERS Safety Report 9089972 (Version 1)
Quarter: 2013Q1

REPORT INFORMATION
  Report Type: Report from Study
  Country: US (occurrence: US)
  Receive Date: 20130218
  Receipt Date: 20130218
  Transmission Date: 20140127
  Serious: No
  Sender: FDA-Public Use
  Company Number: US-ABBOTT-12P-163-0928692-00

PATIENT
  Age: 49 Year
  Sex: Male
  Weight: 63.56 kg

DRUGS (1)
  1. SIMCOR [Suspect]
     Indication: BLOOD CHOLESTEROL INCREASED
     Dates: start: 201203

REACTIONS (6)
  - Mouth haemorrhage [Recovered/Resolved]
  - Foreign body [Recovered/Resolved]
  - Pharyngeal haemorrhage [Recovered/Resolved]
  - Dry throat [Unknown]
  - Epistaxis [Recovered/Resolved]
  - Bronchitis [Recovering/Resolving]
